FAERS Safety Report 25234161 (Version 2)
Quarter: 2025Q3

REPORT INFORMATION
  Report Type: Spontaneous
  Country: JP (occurrence: JP)
  Receive Date: 20250424
  Receipt Date: 20250825
  Transmission Date: 20251021
  Serious: Yes (Hospitalization)
  Sender: AMGEN
  Company Number: JP-AMGEN-JPNSP2025079709

PATIENT
  Age: 6 Decade
  Sex: Female

DRUGS (3)
  1. UPLIZNA [Suspect]
     Active Substance: INEBILIZUMAB-CDON
     Indication: Neuromyelitis optica spectrum disorder
     Dosage: 300 MILLIGRAM, QD
     Route: 040
     Dates: start: 20250207
  2. UPLIZNA [Suspect]
     Active Substance: INEBILIZUMAB-CDON
     Dosage: 300 MILLIGRAM, QD
     Route: 040
     Dates: start: 20250221
  3. UPLIZNA [Suspect]
     Active Substance: INEBILIZUMAB-CDON
     Dosage: 300 MILLIGRAM, QD
     Route: 040
     Dates: start: 20250812

REACTIONS (1)
  - Infection [Recovering/Resolving]
